FAERS Safety Report 5531396-5 (Version None)
Quarter: 2007Q4

REPORT INFORMATION
  Report Type: 
  Country: None (occurrence: None)
  Receive Date: 20071203
  Receipt Date: 20071119
  Transmission Date: 20080405
  Serious: Yes (Death, Hospitalization, Other)
  Sender: FDA-Public Use
  Company Number: JP-BRISTOL-MYERS SQUIBB COMPANY-13986914

PATIENT
  Age: 75 Year
  Sex: Female

DRUGS (7)
  1. BARACLUDE [Suspect]
     Indication: HEPATITIS B
     Route: 048
     Dates: start: 20070712
  2. PREDONINE [Concomitant]
     Route: 048
     Dates: start: 20070701
  3. THERARUBICIN [Concomitant]
     Route: 041
     Dates: start: 20070713, end: 20070823
  4. ONCOVIN [Concomitant]
     Route: 041
     Dates: start: 20070713, end: 20070823
  5. CYCLOPHOSPHAMIDE [Concomitant]
     Route: 041
     Dates: start: 20070713, end: 20070823
  6. FOY [Concomitant]
     Route: 041
     Dates: start: 20070712, end: 20070723
  7. GRAN [Concomitant]
     Route: 058
     Dates: start: 20070721

REACTIONS (6)
  - ALANINE AMINOTRANSFERASE INCREASED [None]
  - ANGIOIMMUNOBLASTIC T-CELL LYMPHOMA [None]
  - CARDIAC FAILURE [None]
  - HISTIOCYTOSIS HAEMATOPHAGIC [None]
  - NEUTROPHIL COUNT DECREASED [None]
  - PLATELET COUNT DECREASED [None]
